FAERS Safety Report 7328788-0 (Version None)
Quarter: 2011Q1

REPORT INFORMATION
  Report Type: 
  Country: None (occurrence: None)
  Receive Date: 20110303
  Receipt Date: 20110217
  Transmission Date: 20110831
  Serious: Yes (Life-Threatening, Hospitalization)
  Sender: FDA-Public Use
  Company Number: GB-ROCHE-758877

PATIENT
  Age: 55 Year
  Sex: Male

DRUGS (5)
  1. LANSOPRAZOLE [Concomitant]
  2. LISINOPRIL [Concomitant]
  3. ISOTRETINOIN [Suspect]
     Indication: PSORIASIS
     Route: 048
  4. ASACOL [Suspect]
     Indication: PSORIASIS
     Route: 048
  5. FELODIPINE [Concomitant]

REACTIONS (3)
  - PLEURITIC PAIN [None]
  - CHEST PAIN [None]
  - PULMONARY EMBOLISM [None]
